FAERS Safety Report 8502999-0 (Version None)
Quarter: 2012Q3

REPORT INFORMATION
  Report Type: 
  Country: None (occurrence: None)
  Receive Date: 20120711
  Receipt Date: 20120706
  Transmission Date: 20120928
  Serious: Yes (Death, Hospitalization, Other)
  Sender: FDA-Public Use
  Company Number: PHHY2010BR88690

PATIENT
  Sex: Male

DRUGS (9)
  1. PREDNISOLONE [Concomitant]
     Dosage: 20 MG, UNK
  2. DIOVAN [Suspect]
     Dosage: 1 DF (80 MG) DAILY
     Dates: start: 20080101
  3. IBRIO [Concomitant]
     Indication: RENAL DISORDER
  4. PREDNISOLONE SODIUM SUCCINATE INJ [Concomitant]
     Dosage: 5 MG
  5. ISOSORBIDE MONONITRATE [Concomitant]
     Indication: CARDIAC DISORDER
     Dosage: 20 MG, UNK
  6. ASPIRIN [Concomitant]
     Indication: CARDIAC DISORDER
     Dosage: 81 MG
  7. AMBROXOL [Concomitant]
  8. DIOVAN [Suspect]
     Indication: CARDIAC DISORDER
     Dosage: 160 MG,
  9. ASPIRIN [Concomitant]
     Dosage: 100 MG, UNK

REACTIONS (8)
  - COUGH [None]
  - GASTRIC DISORDER [None]
  - PNEUMONIA [None]
  - FATIGUE [None]
  - ORGAN FAILURE [None]
  - BLOOD CHOLESTEROL ABNORMAL [None]
  - DECREASED APPETITE [None]
  - BLOOD PRESSURE DECREASED [None]
